FAERS Safety Report 24298126 (Version 1)
Quarter: 2024Q3

REPORT INFORMATION
  Report Type: Spontaneous
  Country: DE (occurrence: DE)
  Receive Date: 20240909
  Receipt Date: 20240909
  Transmission Date: 20241017
  Serious: Yes (Life-Threatening, Hospitalization, Other)
  Sender: TEVA
  Company Number: None

PATIENT
  Age: 67 Year
  Sex: Female

DRUGS (9)
  1. METFORMIN [Suspect]
     Active Substance: METFORMIN HYDROCHLORIDE
     Indication: Product used for unknown indication
     Dosage: 1-0-1,?500
     Route: 048
  2. FUROSEMIDE [Concomitant]
     Active Substance: FUROSEMIDE
     Indication: Product used for unknown indication
     Dosage: 1-0-0
     Route: 048
  3. Semaglutid [Concomitant]
     Indication: Product used for unknown indication
     Dosage: 1X/WEEK
     Route: 058
  4. CARVEDILOL [Concomitant]
     Active Substance: CARVEDILOL
     Indication: Product used for unknown indication
     Dosage: 1-0-1
     Route: 048
  5. LEVOTHYROXINE [Concomitant]
     Active Substance: LEVOTHYROXINE\LEVOTHYROXINE SODIUM
     Indication: Product used for unknown indication
     Dosage: 1-0-0
     Route: 048
  6. PANTOPRAZOLE SODIUM [Concomitant]
     Active Substance: PANTOPRAZOLE SODIUM
     Indication: Product used for unknown indication
     Dosage: 1-0-1
     Route: 048
  7. CHOLECALCIFEROL [Concomitant]
     Active Substance: CHOLECALCIFEROL
     Indication: Product used for unknown indication
     Dosage: 1/WEEK,
     Route: 048
  8. SPIRONOLACTONE [Concomitant]
     Active Substance: SPIRONOLACTONE
     Indication: Product used for unknown indication
     Dosage: 1-0-0,
     Route: 048
  9. PREGABALIN [Concomitant]
     Active Substance: PREGABALIN
     Indication: Product used for unknown indication
     Dosage: 0-0-0-1
     Route: 048

REACTIONS (8)
  - Hepatic cirrhosis [Recovering/Resolving]
  - Ascites [Recovering/Resolving]
  - Varices oesophageal [Recovering/Resolving]
  - Hepatorenal syndrome [Recovering/Resolving]
  - Acute on chronic liver failure [Recovering/Resolving]
  - Non-alcoholic fatty liver [Recovering/Resolving]
  - Lactic acidosis [Recovering/Resolving]
  - Steatohepatitis [Recovering/Resolving]

NARRATIVE: CASE EVENT DATE: 20240805
